FAERS Safety Report 8502187-8 (Version None)
Quarter: 2012Q2

REPORT INFORMATION
  Report Type: 
  Country: None (occurrence: None)
  Receive Date: 20120405
  Receipt Date: 20101025
  Transmission Date: 20120825
  Serious: Yes (Hospitalization)
  Sender: FDA-Public Use
  Company Number: PHHY2010US64272

PATIENT
  Age: 87 Year
  Sex: Female

DRUGS (5)
  1. ACETAMINOPHEN [Concomitant]
  2. IBUPROFEN [Concomitant]
  3. LORAZEPAM [Concomitant]
  4. VITMAINS NOS (VITAMINS NOS) [Concomitant]
  5. RECLAST [Suspect]
     Dosage: INFUSION
     Dates: start: 20100820

REACTIONS (2)
  - PAIN IN EXTREMITY [None]
  - MUSCLE SPASMS [None]
